FAERS Safety Report 23903512 (Version 1)
Quarter: 2024Q2

REPORT INFORMATION
  Report Type: Spontaneous
  Country: JP (occurrence: JP)
  Receive Date: 20240527
  Receipt Date: 20240527
  Transmission Date: 20240716
  Serious: Yes (Hospitalization, Other)
  Sender: FDA-Public Use
  Company Number: JP-CHUGAI-2024016508

PATIENT
  Age: 2 Month
  Sex: Male

DRUGS (1)
  1. HEMLIBRA [Suspect]
     Active Substance: EMICIZUMAB-KXWH
     Indication: Haemophilia A without inhibitors
     Route: 058

REACTIONS (3)
  - Injury [Unknown]
  - Hepatic rupture [Not Recovered/Not Resolved]
  - Shock haemorrhagic [Recovered/Resolved]
